FAERS Safety Report 6962396-6 (Version None)
Quarter: 2010Q3

REPORT INFORMATION
  Report Type: 
  Country: None (occurrence: None)
  Receive Date: 20100823
  Receipt Date: 20100716
  Transmission Date: 20110219
  Serious: No
  Sender: FDA-Public Use
  Company Number: 015685

PATIENT
  Sex: Male

DRUGS (2)
  1. CIMZIA [Suspect]
     Dosage: (SUBCUTANEOUS) ; (SUBCUTANEOUS)
     Route: 058
     Dates: start: 20100501, end: 20100529
  2. CIMZIA [Suspect]
     Dosage: (SUBCUTANEOUS) ; (SUBCUTANEOUS)
     Route: 058
     Dates: start: 20100529

REACTIONS (1)
  - INJECTION SITE REACTION [None]
